FAERS Safety Report 8715101 (Version 2)
Quarter: 2012Q4

REPORT INFORMATION
  Report Type: 
  Country: PR (occurrence: PR)
  Receive Date: 20120809
  Receipt Date: 20120914
  Transmission Date: 20130627
  Serious: Yes (Hospitalization)
  Sender: FDA-Public Use
  Company Number: US-BAYER-2012-077389

PATIENT
  Age: 55 Year
  Sex: Male
  Weight: 44.44 kg

DRUGS (7)
  1. SORAFENIB (RAF KINASE INHIBITOR) [Suspect]
     Indication: LIVER DISORDER
     Dosage: 400 mg, BID
     Route: 048
  2. SORAFENIB (RAF KINASE INHIBITOR) [Suspect]
     Indication: LIVER DISORDER
     Dosage: 400 mg, BID
     Route: 048
     Dates: start: 20120718
  3. CHEMOTHERAPEUTICS NOS [Concomitant]
     Route: 042
  4. DIURETICS [Concomitant]
     Dosage: 2 tablets daily
  5. PROTEINS NOS [Concomitant]
     Dosage: 30 cc daily
     Route: 048
  6. MEGASE [Concomitant]
     Route: 048
  7. MEGASE [Concomitant]

REACTIONS (4)
  - Urinary tract infection [Recovered/Resolved]
  - White blood cell count decreased [Recovered/Resolved]
  - Haemoglobin decreased [Recovered/Resolved]
  - Hospitalisation [None]
